FAERS Safety Report 4684753-3 (Version None)
Quarter: 2005Q2

REPORT INFORMATION
  Report Type: 
  Country: None (occurrence: None)
  Receive Date: 20050603
  Receipt Date: 20050523
  Transmission Date: 20051028
  Serious: Yes (Other)
  Sender: FDA-Public Use
  Company Number: 2005079285

PATIENT
  Age: 52 Year
  Sex: Male

DRUGS (5)
  1. PREDNISONE [Suspect]
     Indication: ILL-DEFINED DISORDER
  2. IBUPROFEN [Suspect]
     Indication: ILL-DEFINED DISORDER
  3. PAROXETINE HCL [Suspect]
     Indication: ILL-DEFINED DISORDER
     Dates: end: 20020101
  4. ACETAMINOPHEN [Suspect]
     Indication: ILL-DEFINED DISORDER
  5. ALCOHOL (ETHANOL) [Concomitant]

REACTIONS (13)
  - ABNORMAL DREAMS [None]
  - ALCOHOL USE [None]
  - ANGER [None]
  - CRYING [None]
  - DISTURBANCE IN ATTENTION [None]
  - DRUG WITHDRAWAL SYNDROME [None]
  - EMOTIONAL DISORDER [None]
  - FEELING ABNORMAL [None]
  - INTENTIONAL MISUSE [None]
  - IRRITABILITY [None]
  - MULTIPLE DRUG OVERDOSE [None]
  - NIGHTMARE [None]
  - SUICIDAL IDEATION [None]
